FAERS Safety Report 4351635-6 (Version None)
Quarter: 2004Q2

REPORT INFORMATION
  Report Type: 
  Country: None (occurrence: None)
  Receive Date: 20040503
  Receipt Date: 20040422
  Transmission Date: 20050107
  Serious: Yes (Other)
  Sender: FDA-Public Use
  Company Number: US-BRISTOL-MYERS SQUIBB COMPANY-12568226

PATIENT
  Age: 77 Year
  Sex: Male
  Weight: 59 kg

DRUGS (1)
  1. EXCEDRIN (MIGRAINE) [Suspect]
     Indication: HEADACHE
     Route: 048

REACTIONS (2)
  - DEPENDENCE [None]
  - DRUG DEPENDENCE [None]
